FAERS Safety Report 25185303 (Version 2)
Quarter: 2025Q3

REPORT INFORMATION
  Report Type: Spontaneous
  Country: RU (occurrence: RU)
  Receive Date: 20250410
  Receipt Date: 20250820
  Transmission Date: 20251021
  Serious: Yes (Other)
  Sender: TEVA
  Company Number: RU-TEVA-VS-3318208

PATIENT
  Age: 54 Year
  Sex: Female

DRUGS (4)
  1. PACLITAXEL [Suspect]
     Active Substance: PACLITAXEL
     Indication: Ovarian cancer
     Route: 065
     Dates: start: 201808
  2. DOCETAXEL [Suspect]
     Active Substance: DOCETAXEL
     Indication: BRCA2 gene mutation
     Route: 065
  3. CARBOPLATIN [Suspect]
     Active Substance: CARBOPLATIN
     Indication: Ovarian cancer
     Route: 065
     Dates: start: 201808
  4. CISPLATIN [Suspect]
     Active Substance: CISPLATIN
     Indication: BRCA2 gene mutation
     Route: 065

REACTIONS (3)
  - Nephropathy toxic [Unknown]
  - Anaemia [Unknown]
  - Drug ineffective [Unknown]
